FAERS Safety Report 14581779 (Version 1)
Quarter: 2018Q1

REPORT INFORMATION
  Report Type: Spontaneous
  Country: IN (occurrence: IN)
  Receive Date: 20180228
  Receipt Date: 20180228
  Transmission Date: 20180509
  Serious: Yes (Congenital Anomaly)
  Sender: FDA-Public Use
  Company Number: PHHY2018IN028472

PATIENT
  Age: 11 Month
  Sex: Male
  Weight: 5 kg

DRUGS (1)
  1. VALPROIC ACID. [Suspect]
     Active Substance: VALPROIC ACID
     Indication: FOETAL EXPOSURE DURING PREGNANCY
     Dosage: MATERNAL DOSE: 1000 MG IN TWO DIVIDED DOSES
     Route: 064

REACTIONS (6)
  - Dysmorphism [Unknown]
  - Cardiac septal defect [Unknown]
  - Foetal exposure during pregnancy [Unknown]
  - Bone deformity [Unknown]
  - Cryptorchism [Unknown]
  - Foetal anticonvulsant syndrome [Unknown]
